FAERS Safety Report 8506203-9 (Version None)
Quarter: 2012Q3

REPORT INFORMATION
  Report Type: 
  Country: None (occurrence: None)
  Receive Date: 20120712
  Receipt Date: 20120703
  Transmission Date: 20120928
  Serious: Yes (Hospitalization)
  Sender: FDA-Public Use
  Company Number: US-CELGENEUS-163-21880-12070602

PATIENT
  Sex: Male

DRUGS (3)
  1. PROCRIT [Concomitant]
     Dosage: 60000 IU (INTERNATIONAL UNIT)
     Route: 058
     Dates: start: 20120403
  2. ASPIRIN [Concomitant]
     Dosage: 325 MILLIGRAM
     Route: 065
  3. REVLIMID [Suspect]
     Indication: MULTIPLE MYELOMA
     Dosage: 25 MILLIGRAM
     Route: 048
     Dates: start: 20120531

REACTIONS (3)
  - DELUSIONAL DISORDER, UNSPECIFIED TYPE [None]
  - INSOMNIA [None]
  - FATIGUE [None]
